FAERS Safety Report 23554226 (Version 1)
Quarter: 2024Q1

REPORT INFORMATION
  Report Type: Spontaneous
  Country: US (occurrence: None)
  Receive Date: 20240222
  Receipt Date: 20240222
  Transmission Date: 20240410
  Serious: Yes (Death)
  Sender: FDA-Public Use
  Company Number: None

PATIENT
  Age: 81 Year
  Sex: Male
  Weight: 82.2 kg

DRUGS (2)
  1. GEMCITABINE HYDROCHLORIDE [Suspect]
     Active Substance: GEMCITABINE HYDROCHLORIDE
     Dates: end: 20230209
  2. PACLITAXEL [Suspect]
     Active Substance: PACLITAXEL
     Dates: end: 20230209

REACTIONS (7)
  - Abdominal pain [None]
  - Abdominal distension [None]
  - Asthenia [None]
  - Incontinence [None]
  - Swelling [None]
  - Jaundice [None]
  - Hospice care [None]

NARRATIVE: CASE EVENT DATE: 20230224
